FAERS Safety Report 5067659-X (Version None)
Quarter: 2006Q3

REPORT INFORMATION
  Report Type: 
  Country: None (occurrence: None)
  Receive Date: 20060713
  Receipt Date: 20051207
  Transmission Date: 20061208
  Serious: Yes (Death)
  Sender: FDA-Public Use
  Company Number: 05P-163-0313170-00

PATIENT
  Age: 72 Year
  Sex: Male
  Weight: 101.8 kg

DRUGS (6)
  1. K-TAB [Suspect]
     Indication: HYPOKALAEMIA
     Dosage: 10 MEQ, 3 IN 1, PER ORAL
     Route: 048
     Dates: start: 20050524, end: 20050926
  2. SIMVASTATIN [Concomitant]
  3. LISINOPRIL [Concomitant]
  4. ASPIRIN [Concomitant]
  5. FUROSEMIDE [Concomitant]
  6. ATENOLOL [Concomitant]

REACTIONS (1)
  - DEATH [None]
